FAERS Safety Report 18198110 (Version 1)
Quarter: 2020Q3

REPORT INFORMATION
  Report Type: Spontaneous
  Country: CA (occurrence: CA)
  Receive Date: 20200826
  Receipt Date: 20200826
  Transmission Date: 20201103
  Serious: Yes (Hospitalization, Other)
  Sender: FDA-Public Use
  Company Number: CA-TEVA-2020-CA-1817855

PATIENT
  Age: 42 Year
  Sex: Male

DRUGS (3)
  1. ETOPOSIDE INJECTION [Suspect]
     Active Substance: ETOPOSIDE
     Indication: TESTIS CANCER
     Route: 042
  2. ETOPOSIDE INJECTION [Suspect]
     Active Substance: ETOPOSIDE
     Route: 042
  3. CISPLATIN INJECTION, BP SINGLE DOSE VIALS. 10MG/10ML, 50MG/50ML AND 10 [Suspect]
     Active Substance: CISPLATIN
     Indication: TESTIS CANCER
     Route: 042

REACTIONS (1)
  - Febrile neutropenia [Recovered/Resolved]
